FAERS Safety Report 25098973 (Version 4)
Quarter: 2025Q3

REPORT INFORMATION
  Report Type: Report from Study
  Country: CA (occurrence: CA)
  Receive Date: 20250320
  Receipt Date: 20250906
  Transmission Date: 20251020
  Serious: Yes (Other)
  Sender: JOHNSON AND JOHNSON
  Company Number: CA-JNJFOC-20250350429

PATIENT
  Age: 65 Year
  Sex: Male

DRUGS (2)
  1. SIMPONI [Suspect]
     Active Substance: GOLIMUMAB
     Indication: Psoriatic arthropathy
     Route: 058
     Dates: start: 20241008
  2. SIMPONI [Suspect]
     Active Substance: GOLIMUMAB
     Route: 058
     Dates: start: 20250612

REACTIONS (2)
  - Pneumonia [Recovering/Resolving]
  - Inappropriate schedule of product administration [Unknown]

NARRATIVE: CASE EVENT DATE: 20250310
